FAERS Safety Report 8625997-5 (Version None)
Quarter: 2012Q3

REPORT INFORMATION
  Report Type: 
  Country: None (occurrence: None)
  Receive Date: 20120827
  Receipt Date: 20120817
  Transmission Date: 20120928
  Serious: Yes (Other)
  Sender: FDA-Public Use
  Company Number: US-ABBOTT-12P-163-0970218-00

PATIENT
  Age: 67 Year
  Sex: Male

DRUGS (6)
  1. ENALAPRIL MALEATE [Concomitant]
     Indication: PRODUCT USED FOR UNKNOWN INDICATION
  2. PREDNISONE TAB [Concomitant]
     Indication: PRODUCT USED FOR UNKNOWN INDICATION
     Dosage: 8 MG IN THE EVEING, 7 MG IN THE MORNING
  3. HUMIRA [Suspect]
     Dates: start: 20120812
  4. HUMIRA [Suspect]
     Indication: CROHN'S DISEASE
     Dates: start: 20120729, end: 20120729
  5. UNKNOWN BLOOD PRESSURE MEDICATION [Concomitant]
     Indication: PRODUCT USED FOR UNKNOWN INDICATION
  6. CLONIDINE [Concomitant]
     Indication: HYPERTENSION

REACTIONS (4)
  - MYOCARDIAL INFARCTION [None]
  - ASTHENIA [None]
  - CHEST DISCOMFORT [None]
  - HYPERHIDROSIS [None]
